FAERS Safety Report 7546127-7 (Version None)
Quarter: 2011Q2

REPORT INFORMATION
  Report Type: 
  Country: None (occurrence: None)
  Receive Date: 20110614
  Receipt Date: 20030924
  Transmission Date: 20111010
  Serious: Yes (Other)
  Sender: FDA-Public Use
  Company Number: PHFR2003GB01389

PATIENT
  Sex: Male

DRUGS (1)
  1. CLOZAPINE [Suspect]
     Indication: SCHIZOPHRENIA
     Route: 048
     Dates: start: 20030102, end: 20030319

REACTIONS (11)
  - DYSPNOEA [None]
  - ENDOCARDITIS [None]
  - ELECTROCARDIOGRAM ABNORMAL [None]
  - CARDIAC MURMUR [None]
  - TACHYCARDIA [None]
  - LABILE BLOOD PRESSURE [None]
  - BLOOD CREATINE PHOSPHOKINASE INCREASED [None]
  - ECG P WAVE INVERTED [None]
  - CARDIAC FAILURE [None]
  - CHEST PAIN [None]
  - ELECTROCARDIOGRAM ST SEGMENT ELEVATION [None]
